FAERS Safety Report 4635930-9 (Version None)
Quarter: 2005Q2

REPORT INFORMATION
  Report Type: 
  Country: None (occurrence: None)
  Receive Date: 20050413
  Receipt Date: 20050405
  Transmission Date: 20051028
  Serious: Yes (Death)
  Sender: FDA-Public Use
  Company Number: 163-20785-05030166

PATIENT
  Age: 81 Year
  Sex: Female

DRUGS (2)
  1. THALOMID [Suspect]
     Indication: MYELODYSPLASTIC SYNDROME
     Dosage: 300 MG, DAILY, ORAL
     Route: 048
     Dates: start: 20040427, end: 20041101
  2. THALOMID [Suspect]
     Indication: REFRACTORY ANAEMIA
     Dosage: 300 MG, DAILY, ORAL
     Route: 048
     Dates: start: 20040427, end: 20041101

REACTIONS (1)
  - SEPSIS [None]
